FAERS Safety Report 6447127-0 (Version None)
Quarter: 2009Q4

REPORT INFORMATION
  Report Type: 
  Country: None (occurrence: None)
  Receive Date: 20091119
  Receipt Date: 20091110
  Transmission Date: 20100525
  Serious: Yes (Life-Threatening)
  Sender: FDA-Public Use
  Company Number: GB-PFIZER INC-2009295251

PATIENT
  Age: 60 Year
  Sex: Female

DRUGS (5)
  1. CLINDAMYCIN PHOSPHATE [Suspect]
     Indication: PROPHYLAXIS
     Dosage: 600 MG, UNK
     Route: 042
     Dates: start: 20090924, end: 20090924
  2. ASPIRIN [Concomitant]
     Dosage: 75 MG, UNK
     Route: 048
     Dates: start: 20090925
  3. EZETIMIBE [Concomitant]
     Dosage: 10 MG, UNK
     Route: 048
     Dates: start: 20090925
  4. PERINDOPRIL [Concomitant]
     Dosage: 4 MG, UNK
     Route: 048
     Dates: start: 20090925
  5. SIMVASTATIN [Concomitant]
     Dosage: 4 MG, UNK
     Route: 048
     Dates: start: 20090925

REACTIONS (2)
  - HYPOTENSION [None]
  - TOXIC SKIN ERUPTION [None]
